FAERS Safety Report 6379858-5 (Version None)
Quarter: 2009Q3

REPORT INFORMATION
  Report Type: 
  Country: None (occurrence: None)
  Receive Date: 20090923
  Receipt Date: 20090916
  Transmission Date: 20100115
  Serious: Yes (Hospitalization)
  Sender: FDA-Public Use
  Company Number: GXKR2009AT10236

PATIENT
  Age: 86 Year
  Sex: Male
  Weight: 89 kg

DRUGS (1)
  1. CARVEDILOL [Suspect]
     Dosage: 25 MG, DAILY CAPSULES, ORAL
     Route: 048

REACTIONS (1)
  - DIPLOPIA [None]
